FAERS Safety Report 14303471 (Version 1)
Quarter: 2017Q4

REPORT INFORMATION
  Report Type: Spontaneous
  Country: JP (occurrence: JP)
  Receive Date: 20171219
  Receipt Date: 20171219
  Transmission Date: 20180321
  Serious: Yes (Hospitalization, Other)
  Sender: FDA-Public Use
  Company Number: JP-OTSUKA-2017_011989

PATIENT
  Age: 28 Year
  Sex: Female
  Weight: 66 kg

DRUGS (3)
  1. ABILIFY [Suspect]
     Active Substance: ARIPIPRAZOLE
     Indication: BORDERLINE PERSONALITY DISORDER
     Dosage: 6 MG, QD, AFTER BREAKFAST
     Route: 048
     Dates: end: 20160511
  2. ABILIFY [Suspect]
     Active Substance: ARIPIPRAZOLE
     Dosage: 6 MG, QD
     Route: 048
     Dates: start: 20160517
  3. PISULCIN [Concomitant]
     Active Substance: AMPICILLIN SODIUM\SULBACTAM SODIUM
     Indication: WHITE BLOOD CELL COUNT INCREASED
     Dosage: 1.5G X 3
     Route: 042

REACTIONS (5)
  - Intrapartum haemorrhage [Unknown]
  - Premature delivery [Unknown]
  - Premature rupture of membranes [Unknown]
  - Threatened labour [Unknown]
  - Suppressed lactation [Unknown]
